FAERS Safety Report 9230348 (Version 1)
Quarter: 2013Q2

REPORT INFORMATION
  Report Type: Spontaneous
  Country: ES (occurrence: ES)
  Receive Date: 20130415
  Receipt Date: 20130415
  Transmission Date: 20140414
  Serious: Yes (Other)
  Sender: FDA-Public Use
  Company Number: PHHY2013ES035473

PATIENT
  Age: 75 Year
  Sex: Male

DRUGS (9)
  1. MYFORTIC [Suspect]
     Indication: PROPHYLAXIS AGAINST TRANSPLANT REJECTION
     Dosage: 360 MG, BID
     Route: 048
     Dates: start: 2005
  2. ADVAGRAF [Suspect]
     Indication: PROPHYLAXIS AGAINST TRANSPLANT REJECTION
     Dosage: 2 MG, ONCE DAILY
     Route: 048
     Dates: start: 2005
  3. ATENOLOL [Concomitant]
  4. CARDURAN [Concomitant]
  5. ENALAPRIL [Concomitant]
  6. LOSARTAN [Concomitant]
  7. OMEPRAZOLE [Concomitant]
  8. TRAMADOL [Concomitant]
  9. AMOXICILLIN + CLAVULANIC ACID [Concomitant]
     Dosage: QD

REACTIONS (2)
  - Polyneuropathy [Recovering/Resolving]
  - Paraesthesia [Unknown]
